FAERS Safety Report 7932311-7 (Version None)
Quarter: 2011Q4

REPORT INFORMATION
  Report Type: 
  Country: None (occurrence: None)
  Receive Date: 20111121
  Receipt Date: 20111111
  Transmission Date: 20120403
  Serious: Yes (Other)
  Sender: FDA-Public Use
  Company Number: US-RB-034273-11

PATIENT
  Age: 33 Year
  Sex: Female

DRUGS (1)
  1. SUBOXONE [Suspect]
     Indication: PRODUCT USED FOR UNKNOWN INDICATION
     Dosage: UNKNOWN
     Route: 065

REACTIONS (6)
  - STAPHYLOCOCCAL INFECTION [None]
  - SUBSTANCE ABUSE [None]
  - HEPATIC STEATOSIS [None]
  - PRECANCEROUS CELLS PRESENT [None]
  - CONDITION AGGRAVATED [None]
  - DRUG DEPENDENCE [None]
